FAERS Safety Report 8957593 (Version 3)
Quarter: 2013Q2

REPORT INFORMATION
  Report Type: Spontaneous
  Country: DE (occurrence: DE)
  Receive Date: 20121211
  Receipt Date: 20130521
  Transmission Date: 20140414
  Serious: Yes (Hospitalization, Other)
  Sender: FDA-Public Use
  Company Number: DE-ELI_LILLY_AND_COMPANY-DE201211008926

PATIENT
  Age: 16 Year
  Sex: Male
  Weight: 71.6 kg

DRUGS (1)
  1. STRATTERA [Suspect]
     Indication: ATTENTION DEFICIT/HYPERACTIVITY DISORDER
     Dosage: 80 MG, EACH MORNING
     Route: 048
     Dates: start: 201210, end: 20121112

REACTIONS (3)
  - Suicidal ideation [Unknown]
  - Suicidal behaviour [Unknown]
  - Depressed mood [Unknown]
